FAERS Safety Report 4644766-4 (Version None)
Quarter: 2005Q2

REPORT INFORMATION
  Report Type: 
  Country: None (occurrence: None)
  Receive Date: 20050426
  Receipt Date: 20050414
  Transmission Date: 20051028
  Serious: Yes (Hospitalization)
  Sender: FDA-Public Use
  Company Number: CH-BRISTOL-MYERS SQUIBB COMPANY-12934519

PATIENT
  Age: 51 Year
  Sex: Female

DRUGS (18)
  1. MAXIPIME [Suspect]
     Indication: BACTERIAL INFECTION
     Dates: start: 20050218
  2. MORPHINE [Suspect]
     Dosage: 20-FEB-2005, DOSE REDUCED TO 7-18 MG DAILY
     Route: 041
     Dates: start: 20050218, end: 20050301
  3. ZOVIRAX [Suspect]
     Indication: TRANSPLANT
     Route: 048
     Dates: start: 20050214
  4. SANDIMMUNE [Suspect]
     Indication: TRANSPLANT
     Route: 048
     Dates: start: 20050216
  5. TEMESTA [Suspect]
     Route: 048
     Dates: start: 20050207
  6. SEROPRAM [Suspect]
     Indication: DYSTHYMIC DISORDER
     Route: 048
  7. VFEND [Suspect]
     Indication: PROPHYLAXIS
     Dosage: ORAL COATED TABLETS, BEGINNING 25-FEB-2005, 200 MG FOUR TIMES DAILY
     Route: 041
     Dates: start: 20050225
  8. DIFLUCAN [Suspect]
     Indication: PROPHYLAXIS
     Dates: start: 20050218
  9. ANTRA [Suspect]
     Route: 048
     Dates: start: 20050218
  10. LIQUAEMIN INJ [Concomitant]
     Route: 041
     Dates: start: 20050207
  11. PROCICLIDE [Concomitant]
     Route: 048
     Dates: start: 20050207
  12. DAFALGAN [Concomitant]
     Route: 048
     Dates: start: 20050207
  13. FLAGYL [Concomitant]
     Route: 048
     Dates: start: 20050218
  14. TARGOCID [Concomitant]
     Route: 041
  15. LEUCOVORIN CALCIUM [Concomitant]
     Route: 041
     Dates: start: 20050222
  16. PASPERTIN [Concomitant]
     Dates: start: 20050222
  17. ULCOGANT [Concomitant]
     Route: 048
     Dates: start: 20050222
  18. VFEND [Concomitant]
     Route: 048
     Dates: start: 20050225, end: 20050226

REACTIONS (8)
  - ASPERGILLOSIS [None]
  - CONFUSIONAL STATE [None]
  - DISORIENTATION [None]
  - HALLUCINATION [None]
  - HALLUCINATIONS, MIXED [None]
  - MUCOSAL INFLAMMATION [None]
  - PYREXIA [None]
  - SOMNOLENCE [None]
